FAERS Safety Report 4802113-9 (Version None)
Quarter: 2005Q4

REPORT INFORMATION
  Report Type: 
  Country: None (occurrence: None)
  Receive Date: 20051011
  Receipt Date: 20050930
  Transmission Date: 20060501
  Serious: Yes (Death)
  Sender: FDA-Public Use
  Company Number: USA-2005-0021403

PATIENT
  Age: 32 Year
  Sex: Female
  Weight: 75.3 kg

DRUGS (6)
  1. OXYCONTIN [Suspect]
  2. HYDROCODONE BITARTRATE [Suspect]
  3. FENTANYL [Suspect]
  4. ETHANOL (ETHANOL) [Suspect]
  5. BENICAR [Concomitant]
  6. HYDROCODONE BITARTRATE [Concomitant]

REACTIONS (7)
  - ACCIDENTAL DEATH [None]
  - CARDIAC ARREST [None]
  - DRUG TOXICITY [None]
  - GRANULOMA [None]
  - LOSS OF CONSCIOUSNESS [None]
  - PULMONARY CONGESTION [None]
  - PULMONARY OEDEMA [None]
